FAERS Safety Report 9967372 (Version 1)
Quarter: 2014Q1

REPORT INFORMATION
  Report Type: Report from Study
  Country: US (occurrence: US)
  Receive Date: 20140305
  Receipt Date: 20140305
  Transmission Date: 20141002
  Serious: No
  Sender: FDA-Public Use
  Company Number: US-ABBVIE-13P-163-1137377-00

PATIENT
  Sex: Female

DRUGS (2)
  1. HUMIRA [Suspect]
     Indication: CROHN^S DISEASE
     Dosage: PER CHART STARTED ON THERAPY 22-APR-2010
     Route: 058
     Dates: start: 20100422
  2. HUMIRA [Suspect]
     Dosage: RESTART DATE 23-AUG-2013
     Route: 058
     Dates: start: 20130823

REACTIONS (1)
  - Crohn^s disease [Unknown]
